FAERS Safety Report 16793452 (Version 1)
Quarter: 2019Q3

REPORT INFORMATION
  Report Type: Spontaneous
  Country: US (occurrence: US)
  Receive Date: 20190911
  Receipt Date: 20190911
  Transmission Date: 20191005
  Serious: No
  Sender: FDA-Public Use
  Company Number: US-JNJFOC-20190832593

PATIENT
  Sex: Female

DRUGS (1)
  1. CHILDRENS TYLENOL DISSOLVE PACKS, WILD BERRY FLAVOR [Suspect]
     Active Substance: ACETAMINOPHEN
     Indication: PRODUCT USE IN UNAPPROVED INDICATION
     Route: 048

REACTIONS (2)
  - Product use in unapproved indication [Unknown]
  - Product administered to patient of inappropriate age [Unknown]
